FAERS Safety Report 18616618 (Version 2)
Quarter: 2020Q4

REPORT INFORMATION
  Report Type: Spontaneous
  Country: US (occurrence: US)
  Receive Date: 20201215
  Receipt Date: 20201230
  Transmission Date: 20210114
  Serious: No
  Sender: FDA-Public Use
  Company Number: US-TEVA-2020-US-1857910

PATIENT
  Age: 67 Year
  Sex: Female

DRUGS (2)
  1. ESTRADIOL. [Suspect]
     Active Substance: ESTRADIOL
     Route: 060
  2. ESTRADIOL. [Suspect]
     Active Substance: ESTRADIOL
     Route: 060

REACTIONS (3)
  - Hypertension [Recovered/Resolved]
  - Arteriosclerosis [Recovering/Resolving]
  - Incorrect route of product administration [Unknown]
